FAERS Safety Report 17197522 (Version 2)
Quarter: 2020Q1

REPORT INFORMATION
  Report Type: Spontaneous
  Country: JP (occurrence: JP)
  Receive Date: 20191224
  Receipt Date: 20200109
  Transmission Date: 20200409
  Serious: Yes (Death, Life-Threatening, Hospitalization, Other)
  Sender: FDA-Public Use
  Company Number: JP-BAUSCH-BL-2019-065395

PATIENT
  Age: 70 Year
  Sex: Male
  Weight: 53.8 kg

DRUGS (4)
  1. NICOTINAMIDE [Concomitant]
     Active Substance: NIACINAMIDE
     Indication: PEMPHIGOID
  2. PREDNISOLONE. [Suspect]
     Active Substance: PREDNISOLONE
     Indication: PEMPHIGOID
     Dosage: 0.5 MG/KG/DAY (30 MG/DAY)
     Route: 048
     Dates: start: 20180124
  3. PREDNISOLONE. [Suspect]
     Active Substance: PREDNISOLONE
     Dosage: TAPERING THE PREDNISOLONE TO 25 MG/DAY
     Route: 048
     Dates: end: 20180220
  4. MINOCYCLINE [Concomitant]
     Active Substance: MINOCYCLINE HYDROCHLORIDE
     Indication: PEMPHIGOID

REACTIONS (2)
  - Disseminated intravascular coagulation [Fatal]
  - Aspergillus infection [Fatal]

NARRATIVE: CASE EVENT DATE: 20180214
